FAERS Safety Report 8921418 (Version 1)
Quarter: 2012Q4

REPORT INFORMATION
  Report Type: 
  Country: US (occurrence: US)
  Receive Date: 20121122
  Receipt Date: 20121122
  Transmission Date: 20130627
  Serious: Yes (Other)
  Sender: FDA-Public Use
  Company Number: US-ACCORD-015293

PATIENT
  Age: 50 Year
  Sex: Female

DRUGS (7)
  1. LISINOPRIL [Concomitant]
  2. QUETIAPINE FUMARATE [Suspect]
     Indication: MAJOR DEPRESSION
     Dosage: For more than one year
  3. VERAPAMIL [Concomitant]
  4. VENLAFAXINE [Concomitant]
  5. HYDROCHLOROTHIAZIDE [Concomitant]
  6. TOPIRAMATE [Concomitant]
     Indication: MIGRAINE HEADACHE
  7. BUPROPION [Concomitant]

REACTIONS (2)
  - Somnambulism [Recovered/Resolved]
  - Sleep-related eating disorder [Recovered/Resolved]
